FAERS Safety Report 16473839 (Version 2)
Quarter: 2019Q3

REPORT INFORMATION
  Report Type: Report from Study
  Country: DE (occurrence: DE)
  Receive Date: 20190625
  Receipt Date: 20190813
  Transmission Date: 20191004
  Serious: Yes (Other)
  Sender: FDA-Public Use
  Company Number: DE-ROCHE-2214819

PATIENT
  Age: 78 Year
  Sex: Male
  Weight: 78 kg

DRUGS (5)
  1. CITALOPRAM [Concomitant]
     Active Substance: CITALOPRAM HYDROBROMIDE
     Dosage: INDICATION: ANTI DEPRESSIVE
     Route: 048
     Dates: start: 20160311
  2. BUDESONID [Concomitant]
     Active Substance: BUDESONIDE
     Indication: ASTHMA
     Route: 048
     Dates: start: 19940101
  3. OCRELIZUMAB. [Suspect]
     Active Substance: OCRELIZUMAB
     Indication: MULTIPLE SCLEROSIS
     Dosage: DATE OF MOST RECENT DOSE: 28/MAY/2018
     Route: 042
     Dates: start: 20180514, end: 20180528
  4. FENISTIL [Concomitant]
     Active Substance: DIMETHINDENE
     Indication: PREMEDICATION
     Route: 042
     Dates: start: 20180514
  5. METHYLPREDNISOLON [METHYLPREDNISOLONE] [Concomitant]
     Active Substance: METHYLPREDNISOLONE
     Indication: PREMEDICATION
     Route: 042
     Dates: start: 20180514

REACTIONS (1)
  - Syncope [Recovered/Resolved]

NARRATIVE: CASE EVENT DATE: 20180927
